FAERS Safety Report 5499489-9 (Version None)
Quarter: 2007Q4

REPORT INFORMATION
  Report Type: 
  Country: None (occurrence: None)
  Receive Date: 20071026
  Receipt Date: 20071016
  Transmission Date: 20080405
  Serious: Yes (Death, Hospitalization)
  Sender: FDA-Public Use
  Company Number: US-ROCHE-512923

PATIENT
  Age: 37 Year
  Sex: Female
  Weight: 90.4 kg

DRUGS (1)
  1. CAPECITABINE [Suspect]
     Indication: BREAST CANCER
     Route: 065
     Dates: start: 20070625, end: 20070628

REACTIONS (3)
  - ACUTE RESPIRATORY FAILURE [None]
  - BREAST CANCER METASTATIC [None]
  - MUCOSAL INFLAMMATION [None]
